FAERS Safety Report 9858444 (Version 1)
Quarter: 2014Q1

REPORT INFORMATION
  Report Type: Spontaneous
  Country: US (occurrence: None)
  Receive Date: 20140129
  Receipt Date: 20140129
  Transmission Date: 20141002
  Serious: Yes (Disabling, Other)
  Sender: FDA-Public Use
  Company Number: None

PATIENT
  Sex: Female

DRUGS (11)
  1. XYLOCAINE WITH EPINEPHRINE [Suspect]
  2. AMBIEN [Concomitant]
  3. LAMICTAL [Concomitant]
  4. OMEPRAZOLY [Concomitant]
  5. VIOKASE [Concomitant]
  6. CARISOPRODOL [Concomitant]
  7. SPRIVIA [Concomitant]
  8. CLONAZEPAM [Concomitant]
  9. ADVIL [Concomitant]
  10. TYLENOL [Concomitant]
  11. ZANTAC [Concomitant]

REACTIONS (1)
  - Deafness [None]
